FAERS Safety Report 7900367-3 (Version None)
Quarter: 2011Q4

REPORT INFORMATION
  Report Type: 
  Country: None (occurrence: None)
  Receive Date: 20111108
  Receipt Date: 20111106
  Transmission Date: 20120403
  Serious: No
  Sender: FDA-Public Use
  Company Number: US-PFIZER INC-2011270902

PATIENT
  Sex: Female

DRUGS (3)
  1. PRISTIQ [Suspect]
     Dosage: 100 MG, 1X/DAY
  2. PRISTIQ [Suspect]
     Dosage: 50 MG, 1X/DAY
  3. PRISTIQ [Suspect]
     Dosage: 50 MG, ONCE EVERY OTHER DAY

REACTIONS (5)
  - WITHDRAWAL SYNDROME [None]
  - VOMITING [None]
  - NAUSEA [None]
  - INSOMNIA [None]
  - AGITATION [None]
